FAERS Safety Report 4802556-3 (Version None)
Quarter: 2005Q4

REPORT INFORMATION
  Report Type: 
  Country: None (occurrence: None)
  Receive Date: 20051011
  Receipt Date: 20050928
  Transmission Date: 20060501
  Serious: Yes (Other)
  Sender: FDA-Public Use
  Company Number: 2005071136

PATIENT
  Age: 77 Year
  Sex: Female
  Weight: 54.4316 kg

DRUGS (10)
  1. DETROL LA [Suspect]
     Indication: POLLAKIURIA
     Dosage: 4 MG (4 MG, 1 IN 1 D), ORAL
     Route: 048
     Dates: start: 20050311
  2. PREDNISONE [Concomitant]
  3. METHOTREXATE [Concomitant]
  4. ANTIBIOTICS (ANTIBIOTICS) [Concomitant]
  5. METFORMIN (METFORMIN) [Concomitant]
  6. MECLIZINE [Concomitant]
  7. LISINOPRIL [Concomitant]
  8. FLUOXETINE [Concomitant]
  9. ACTONEL [Concomitant]
  10. HYDROCODONE (HYDROCODONE) [Concomitant]

REACTIONS (2)
  - DRUG EFFECT DECREASED [None]
  - FOREIGN BODY SENSATION IN EYES [None]
